FAERS Safety Report 8934642 (Version 2)
Quarter: 2013Q2

REPORT INFORMATION
  Report Type: Spontaneous
  Country: IT (occurrence: IT)
  Receive Date: 20121129
  Receipt Date: 20130528
  Transmission Date: 20140414
  Serious: Yes (Death)
  Sender: FDA-Public Use
  Company Number: FR-OTSUKA-US-2012-11699

PATIENT
  Age: 19 Year
  Sex: Male

DRUGS (8)
  1. BUSULFEX [Suspect]
     Indication: STEM CELL TRANSPLANT
     Dosage: 1 MG/KG, QID
     Route: 048
  2. MELPHALAN [Concomitant]
  3. VINCRISTINE [Concomitant]
  4. DOXORUBICIN [Concomitant]
  5. IFOSFAMIDE [Concomitant]
  6. CYCLOPHOSPHAMIDE [Concomitant]
  7. ETOPOSIDE [Concomitant]
  8. G-CSF [Concomitant]

REACTIONS (1)
  - Multi-organ failure [Fatal]
